FAERS Safety Report 9993411 (Version 2)
Quarter: 2014Q2

REPORT INFORMATION
  Report Type: Report from Study
  Country: GB (occurrence: GB)
  Receive Date: 20140310
  Receipt Date: 20140430
  Transmission Date: 20141212
  Serious: Yes (Death, Hospitalization, Other)
  Sender: FDA-Public Use
  Company Number: CA-PFIZER INC-2014067331

PATIENT
  Age: 2 Year
  Sex: Female

DRUGS (2)
  1. CO-AMOXICLAV [Suspect]
     Dosage: UNK
  2. AZITHROMYCIN [Suspect]
     Dosage: UNK

REACTIONS (2)
  - Pulmonary haemorrhage [Fatal]
  - Drug reaction with eosinophilia and systemic symptoms [Unknown]
